FAERS Safety Report 8358805 (Version 2)
Quarter: 2012Q4

REPORT INFORMATION
  Report Type: Spontaneous
  Country: US (occurrence: None)
  Receive Date: 20120117
  Receipt Date: 20120814
  Transmission Date: 20130627
  Serious: Yes (Other)
  Sender: FDA-Public Use
  Company Number: 2012MA000392

PATIENT
  Sex: Male
  Weight: 78.47 kg

DRUGS (26)
  1. METOCLOPRAMIDE [Suspect]
     Indication: PRODUCT USED FOR UNKNOWN INDICATION
     Dosage: 10 MG; TID AC; UNK
     Dates: start: 20060210, end: 20081218
  2. METOCLOPRAMIDE [Suspect]
     Dosage: 10 MG; TID AC; UNK
     Dates: start: 20060210, end: 20081218
  3. AMLODIPINE BESYLATE [Concomitant]
  4. ASPIRINE [Concomitant]
  5. BRIMONIDINE TARTRATE [Concomitant]
  6. DITROPAN [Concomitant]
  7. DONEPEZIL [Concomitant]
  8. DORZOLAMIDE/TIMOLOL [Concomitant]
  9. GABAPENTIN [Concomitant]
  10. HCTZ [Concomitant]
  11. IBUPROFEN [Concomitant]
  12. INDOMETHACIN [Concomitant]
  13. LEVOTHYROXINE [Concomitant]
  14. LISINOPRIL [Concomitant]
  15. METFORMIN [Concomitant]
  16. METHOCARBAMOL [Concomitant]
  17. METOPROLOL [Concomitant]
  18. NARCOTICS [Concomitant]
  19. NSAIDS [Concomitant]
  20. NITROGLYCERIN [Concomitant]
  21. OXYBUTYNIN CHLORIDE [Concomitant]
  22. RANITIDINE [Concomitant]
  23. SIMVASTATIN [Concomitant]
  24. STEROIDS [Concomitant]
  25. TRAVOPROST [Concomitant]
  26. TRAZODONE [Concomitant]

REACTIONS (6)
  - Tardive dyskinesia [None]
  - Tremor [None]
  - Parkinson^s disease [None]
  - Economic problem [None]
  - Emotional disorder [None]
  - Family stress [None]
